FAERS Safety Report 23442316 (Version 1)
Quarter: 2024Q1

REPORT INFORMATION
  Report Type: Other
  Country: None (occurrence: US)
  Receive Date: 20240125
  Receipt Date: 20240125
  Transmission Date: 20240410
  Serious: Yes (Life-Threatening, Hospitalization, Other)
  Sender: FDA-Public Use
  Company Number: US-B.Braun Medical Inc.-2151976

PATIENT
  Age: 24 Year
  Sex: Female

DRUGS (8)
  1. MAGNESIUM SULFATE IN DEXTROSE [Suspect]
     Active Substance: MAGNESIUM SULFATE
     Indication: Seizure prophylaxis
     Route: 042
  2. HYDRALAZINE [Concomitant]
     Active Substance: HYDRALAZINE HYDROCHLORIDE
  3. NIFEDIPINE [Concomitant]
     Active Substance: NIFEDIPINE
  4. MISOPROSTOL [Concomitant]
     Active Substance: MISOPROSTOL
  5. OXYTOCIN [Concomitant]
     Active Substance: OXYTOCIN
  6. Bupivacaine with fentanyl [Concomitant]
  7. LABETALOL [Concomitant]
     Active Substance: LABETALOL\LABETALOL HYDROCHLORIDE
  8. Lidocaine with sodium bicarbonate [Concomitant]

REACTIONS (7)
  - Toxicity to various agents [None]
  - Hypermagnesaemia [None]
  - Acute kidney injury [None]
  - Eclampsia [None]
  - Posterior reversible encephalopathy syndrome [None]
  - Drug ineffective [None]
  - Maternal exposure during pregnancy [None]
